FAERS Safety Report 12582554 (Version 2)
Quarter: 2016Q3

REPORT INFORMATION
  Report Type: Spontaneous
  Country: HR (occurrence: HR)
  Receive Date: 20160722
  Receipt Date: 20160726
  Transmission Date: 20161109
  Serious: Yes (Life-Threatening, Other)
  Sender: FDA-Public Use
  Company Number: PHHY2016HR098151

PATIENT
  Sex: Female

DRUGS (6)
  1. AMLOPIN [Suspect]
     Active Substance: AMLODIPINE BESYLATE
     Indication: PRODUCT USED FOR UNKNOWN INDICATION
     Dosage: 110 MG,
     Route: 048
     Dates: start: 20160115, end: 20160115
  2. HELEX [Suspect]
     Active Substance: ALPRAZOLAM
     Indication: PRODUCT USED FOR UNKNOWN INDICATION
     Dosage: 0.25 MG,
     Route: 048
     Dates: start: 20160115, end: 20160115
  3. SULPIRIDE [Suspect]
     Active Substance: SULPIRIDE
     Indication: PRODUCT USED FOR UNKNOWN INDICATION
     Dosage: 100 MG,
     Route: 048
     Dates: start: 20160115, end: 20160115
  4. ASKA [Suspect]
     Active Substance: ASPIRIN
     Indication: PRODUCT USED FOR UNKNOWN INDICATION
     Dosage: 300 MG,
     Route: 048
     Dates: start: 20160115, end: 20160115
  5. TEGRETOL [Suspect]
     Active Substance: CARBAMAZEPINE
     Indication: PRODUCT USED FOR UNKNOWN INDICATION
     Dosage: 2 DF,
     Route: 048
     Dates: start: 20160115, end: 20160115
  6. ZALDIAR [Suspect]
     Active Substance: ACETAMINOPHEN\TRAMADOL HYDROCHLORIDE
     Indication: PRODUCT USED FOR UNKNOWN INDICATION
     Dosage: 3 DF,
     Route: 048
     Dates: start: 20160115, end: 20160115

REACTIONS (4)
  - Overdose [Unknown]
  - Respiratory failure [Unknown]
  - Hypotension [Unknown]
  - Coma [Unknown]

NARRATIVE: CASE EVENT DATE: 20160115
